FAERS Safety Report 9457497 (Version 2)
Quarter: 2013Q3

REPORT INFORMATION
  Report Type: Report from Study
  Country: DE (occurrence: DE)
  Receive Date: 20130814
  Receipt Date: 20130816
  Transmission Date: 20140515
  Serious: Yes (Death, Hospitalization)
  Sender: FDA-Public Use
  Company Number: DE-ROCHE-1254856

PATIENT
  Age: 48 Year
  Sex: Male
  Weight: 71 kg

DRUGS (7)
  1. BEVACIZUMAB [Suspect]
     Indication: COLORECTAL CANCER METASTATIC
     Dosage: ON DAY 1 OF 21 DAY CYCLE, DATE OF LAST DOSE PRIOR TO SAE 02/JUL/2013
     Route: 042
     Dates: start: 20130403
  2. CAPECITABINE [Suspect]
     Indication: COLORECTAL CANCER METASTATIC
     Dosage: 4800 MG ON DAY 1-14 OF 21 DAY CYCLE, DATE OF LAST DOSE PRIOR TO SAE 02/JUL/2013
     Route: 048
     Dates: start: 20130403
  3. NOVALGIN [Concomitant]
     Dosage: 120 DROPS DAILY
     Route: 065
  4. TARGIN [Concomitant]
     Dosage: TARGIN20/10
     Route: 065
  5. PANTOZOL (GERMANY) [Concomitant]
     Route: 065
  6. SIMETHICONE [Concomitant]
     Route: 065
  7. SAROTEN [Concomitant]

REACTIONS (2)
  - General physical health deterioration [Fatal]
  - Cerebral haemorrhage [Fatal]
